FAERS Safety Report 17344715 (Version 1)
Quarter: 2020Q1

REPORT INFORMATION
  Report Type: Spontaneous
  Country: US (occurrence: US)
  Receive Date: 20200129
  Receipt Date: 20200129
  Transmission Date: 20200409
  Serious: No
  Sender: FDA-Public Use
  Company Number: US-ALLERGAN-1943801US

PATIENT
  Age: 49 Year
  Sex: Female

DRUGS (4)
  1. BOTOX COSMETIC [Suspect]
     Active Substance: ONABOTULINUMTOXINA
     Dosage: 2 UNITS, SINGLE
     Dates: start: 20191017, end: 20191017
  2. BOTOX COSMETIC [Suspect]
     Active Substance: ONABOTULINUMTOXINA
     Indication: OFF LABEL USE
     Dosage: 2 UNITS, SINGLE
     Dates: start: 20191017, end: 20191017
  3. BOTOX COSMETIC [Suspect]
     Active Substance: ONABOTULINUMTOXINA
     Indication: OFF LABEL USE
     Dosage: 2 UNITS, SINGLE
     Dates: start: 20191017, end: 20191017
  4. BOTOX COSMETIC [Suspect]
     Active Substance: ONABOTULINUMTOXINA
     Dosage: 2 UNITS, SINGLE
     Dates: start: 20191017, end: 20191017

REACTIONS (2)
  - Off label use [Unknown]
  - Facial paresis [Recovered/Resolved]

NARRATIVE: CASE EVENT DATE: 201910
